FAERS Safety Report 25503808 (Version 1)
Quarter: 2025Q3

REPORT INFORMATION
  Report Type: Spontaneous
  Country: US (occurrence: None)
  Receive Date: 20250701
  Receipt Date: 20250701
  Transmission Date: 20251021
  Serious: Yes (Hospitalization)
  Sender: FDA-CTU
  Company Number: None

PATIENT
  Sex: Female

DRUGS (9)
  1. LENALIDOMIDE [Suspect]
     Active Substance: LENALIDOMIDE
     Indication: Plasma cell myeloma
     Route: 048
     Dates: start: 20250603
  2. ACYCLOVIR [Concomitant]
     Active Substance: ACYCLOVIR
  3. ALLERGY RELF TAB 10MG [Concomitant]
  4. ASPIRIN LOW TAB 81MG EC [Concomitant]
  5. ATENOL/CHLOR TAB 100-25MG [Concomitant]
  6. BACTRIM TAB 400-80MG [Concomitant]
  7. DEXAMETHASONE [Concomitant]
     Active Substance: DEXAMETHASONE
  8. VELCADE [Concomitant]
     Active Substance: BORTEZOMIB
  9. ZOLEDRONIC ACID [Concomitant]
     Active Substance: ZOLEDRONIC ACID

REACTIONS (2)
  - Pericardial effusion [None]
  - Pneumonia [None]
